FAERS Safety Report 13715167 (Version 1)
Quarter: 2017Q3

REPORT INFORMATION
  Report Type: Spontaneous
  Country: US (occurrence: US)
  Receive Date: 20170704
  Receipt Date: 20170704
  Transmission Date: 20171127
  Serious: Yes (Death)
  Sender: FDA-Public Use
  Company Number: US-APOTEX-2017AP013830

PATIENT
  Age: 25 Year
  Sex: Male

DRUGS (3)
  1. THEOBROMINE [Suspect]
     Active Substance: THEOBROMINE
     Indication: PRODUCT USED FOR UNKNOWN INDICATION
     Route: 065
  2. NICOTINE TRANSDERMAL SYSTEM [Suspect]
     Active Substance: NICOTINE
     Indication: PRODUCT USED FOR UNKNOWN INDICATION
     Route: 065
  3. CAFFEINE. [Suspect]
     Active Substance: CAFFEINE
     Indication: PRODUCT USED FOR UNKNOWN INDICATION
     Route: 065

REACTIONS (1)
  - Adverse drug reaction [Fatal]
